FAERS Safety Report 10083268 (Version 1)
Quarter: 2014Q2

REPORT INFORMATION
  Report Type: Spontaneous
  Country: US (occurrence: None)
  Receive Date: 20140415
  Receipt Date: 20140415
  Transmission Date: 20141212
  Serious: Yes (Other)
  Sender: FDA-Public Use
  Company Number: None

PATIENT
  Age: 77 Day
  Sex: Female
  Weight: 67.13 kg

DRUGS (1)
  1. GABAPENTIN [Suspect]
     Indication: PRODUCT USED FOR UNKNOWN INDICATION
     Dosage: 1 CAPSULE 3 X PER DAY, THREE TIMES DAILY, TAKEN BY MOUTH
     Route: 048
     Dates: start: 20140325, end: 20140409

REACTIONS (4)
  - Dizziness [None]
  - Nausea [None]
  - Balance disorder [None]
  - Cystitis [None]
